FAERS Safety Report 5934965-3 (Version None)
Quarter: 2008Q4

REPORT INFORMATION
  Report Type: 
  Country: None (occurrence: None)
  Receive Date: 20081028
  Receipt Date: 20081020
  Transmission Date: 20090506
  Serious: Yes (Other)
  Sender: FDA-Public Use
  Company Number: CHPA2008US17913

PATIENT
  Age: 39 Year
  Sex: Male

DRUGS (2)
  1. THERAFLU SEVERE COLD (NCH) (PHENIRAMINE MALEATE, PHENYLEPHRINE HYDROCH [Suspect]
     Indication: NASOPHARYNGITIS
     Dosage: 1 DF, ONCE, SINGLE, ORAL
     Route: 048
  2. DRUG THERAPY NOS (DRUG THERAPY NOS) [Suspect]
     Dosage: 1 DF, QD, ORAL
     Route: 048

REACTIONS (6)
  - BLOOD PRESSURE INCREASED [None]
  - CONVULSION [None]
  - CRYING [None]
  - DIZZINESS [None]
  - DYSKINESIA [None]
  - LOSS OF CONSCIOUSNESS [None]
